FAERS Safety Report 19800898 (Version 1)
Quarter: 2021Q3

REPORT INFORMATION
  Report Type: Spontaneous
  Country: CA (occurrence: CA)
  Receive Date: 20210908
  Receipt Date: 20210908
  Transmission Date: 20211014
  Serious: Yes (Other)
  Sender: FDA-Public Use
  Company Number: CA-SA-2021SA295127

PATIENT
  Sex: Female

DRUGS (40)
  1. BUDESONIDE. [Suspect]
     Active Substance: BUDESONIDE
     Dosage: UNK
  2. ATORVASTATIN CALCIUM. [Suspect]
     Active Substance: ATORVASTATIN CALCIUM
     Dosage: UNK
  3. FLUTICASONE FUROATE [Suspect]
     Active Substance: FLUTICASONE FUROATE
     Dosage: UNK
  4. AZITHROMYCIN ANHYDROUS. [Suspect]
     Active Substance: AZITHROMYCIN ANHYDROUS
     Dosage: UNK
  5. ERTAPENEM SODIUM [Suspect]
     Active Substance: ERTAPENEM SODIUM
     Dosage: UNK
  6. FLOVENT [Suspect]
     Active Substance: FLUTICASONE PROPIONATE
     Dosage: UNK
  7. MUPIROCIN. [Suspect]
     Active Substance: MUPIROCIN
     Dosage: UNK
     Route: 061
  8. NADOLOL. [Suspect]
     Active Substance: NADOLOL
     Dosage: UNK
  9. SULFAMETHOXAZOLE/TRIMETHOPRIM [Suspect]
     Active Substance: SULFAMETHOXAZOLE\TRIMETHOPRIM
     Dosage: UNK
  10. PARACETAMOL [Suspect]
     Active Substance: ACETAMINOPHEN
     Dosage: UNK
  11. AMOXICILLIN TRIHYDRATE [Suspect]
     Active Substance: AMOXICILLIN
     Dosage: UNK
  12. DIPHENHYDRAMINE. [Suspect]
     Active Substance: DIPHENHYDRAMINE
     Dosage: UNK
  13. MORPHINE SULFATE. [Suspect]
     Active Substance: MORPHINE SULFATE
     Dosage: UNK
  14. HYDROCHLOROTHIAZIDE. [Suspect]
     Active Substance: HYDROCHLOROTHIAZIDE
     Dosage: UNK
  15. NICODERM CQ [Suspect]
     Active Substance: NICOTINE
     Dosage: UNK
  16. NICOTINE POLACRILEX [Suspect]
     Active Substance: NICOTINE
     Dosage: UNK
  17. PREDNISONE. [Suspect]
     Active Substance: PREDNISONE
     Dosage: UNK
  18. SODIUM CHLORIDE. [Suspect]
     Active Substance: SODIUM CHLORIDE
     Dosage: UNK
  19. CALCIUM CARBONATE;VITAMIN D NOS [Concomitant]
     Active Substance: CALCIUM CARBONATE\VITAMIN D
     Dosage: UNK
  20. VALSARTAN. [Concomitant]
     Active Substance: VALSARTAN
     Dosage: UNK
  21. CETIRIZINE HYDROCHLORIDE. [Suspect]
     Active Substance: CETIRIZINE HYDROCHLORIDE
     Indication: ALLERGY PROPHYLAXIS
     Dosage: UNK
  22. CLOTRIMAZOLE. [Suspect]
     Active Substance: CLOTRIMAZOLE
     Dosage: UNK
  23. GLYCERINE [Suspect]
     Active Substance: GLYCERIN
     Dosage: UNK
  24. GRAMICIDIN;NEOMYCIN SULFATE;POLYMYXIN B SULFATE [Suspect]
     Active Substance: GRAMICIDIN\NEOMYCIN SULFATE\POLYMYXIN B SULFATE
     Dosage: UNK
  25. TRIAMCINOLONE ACETONIDE. [Suspect]
     Active Substance: TRIAMCINOLONE ACETONIDE
     Dosage: UNK
  26. MESALAMINE. [Suspect]
     Active Substance: MESALAMINE
     Dosage: UNK
  27. MESALAZINE [Suspect]
     Active Substance: MESALAMINE
     Dosage: UNK
  28. ALPRAZOLAM. [Suspect]
     Active Substance: ALPRAZOLAM
     Dosage: UNK
  29. BETAMETHASONE DIPROPIONATE. [Suspect]
     Active Substance: BETAMETHASONE DIPROPIONATE
     Dosage: UNK
  30. BISACODYL. [Suspect]
     Active Substance: BISACODYL
     Dosage: UNK
  31. LOPERAMIDE HYDROCHLORIDE. [Suspect]
     Active Substance: LOPERAMIDE HYDROCHLORIDE
     Dosage: 1 DF, QCY,1 DOSAGE FORMS (1 DOSAGE FORMS,1 IN 1 CYCLICAL)
     Route: 048
  32. PANTOPRAZOLE [Suspect]
     Active Substance: PANTOPRAZOLE
     Dosage: UNK
  33. COLECALCIFEROL [Suspect]
     Active Substance: CHOLECALCIFEROL
     Dosage: UNK
  34. PREGABALIN. [Suspect]
     Active Substance: PREGABALIN
     Dosage: UNK
  35. METRONIDAZOLE. [Suspect]
     Active Substance: METRONIDAZOLE
     Indication: PRODUCT USED FOR UNKNOWN INDICATION
     Dosage: UNK
  36. DESONIDE. [Suspect]
     Active Substance: DESONIDE
     Dosage: UNK
  37. HYDROMORPHONE HYDROCHLORIDE. [Suspect]
     Active Substance: HYDROMORPHONE HYDROCHLORIDE
     Dosage: UNK
  38. ADALIMUMAB [Suspect]
     Active Substance: ADALIMUMAB
     Indication: CROHN^S DISEASE
     Dosage: UNK
     Route: 058
  39. BETAMETHASONE VALERATE. [Suspect]
     Active Substance: BETAMETHASONE VALERATE
     Dosage: UNK
  40. CLARITHROMYCIN. [Suspect]
     Active Substance: CLARITHROMYCIN
     Dosage: UNK

REACTIONS (2)
  - Drug ineffective [Unknown]
  - Macular degeneration [Unknown]
